FAERS Safety Report 5157740-9 (Version None)
Quarter: 2006Q4

REPORT INFORMATION
  Report Type: 
  Country: None (occurrence: None)
  Receive Date: 20061127
  Receipt Date: 20040128
  Transmission Date: 20070319
  Serious: Yes (Other)
  Sender: FDA-Public Use
  Company Number: 2004SE00426

PATIENT
  Age: 20687 Day
  Sex: Female

DRUGS (8)
  1. CANDESARTAN CILEXETIL [Suspect]
     Indication: DIABETIC RETINOPATHY
     Route: 048
     Dates: start: 20031015, end: 20040108
  2. CANDESARTAN CILEXETIL [Suspect]
     Route: 048
     Dates: start: 20040123
  3. GLICLAZIDE [Concomitant]
     Dates: start: 19940101
  4. METFORMIN [Concomitant]
     Dates: start: 19940101
  5. SERETIDE [Concomitant]
     Dates: start: 19940101
  6. CELEBREX [Concomitant]
     Dates: start: 19940101, end: 20031203
  7. MEDROL [Concomitant]
     Dates: start: 19940101, end: 20031222
  8. TRANS ACT [Concomitant]
     Dates: start: 19940101, end: 20040110

REACTIONS (1)
  - PERIARTHRITIS [None]
